FAERS Safety Report 7736083-0 (Version None)
Quarter: 2011Q3

REPORT INFORMATION
  Report Type: 
  Country: None (occurrence: None)
  Receive Date: 20110908
  Receipt Date: 20110824
  Transmission Date: 20111222
  Serious: Yes (Other)
  Sender: FDA-Public Use
  Company Number: US-JNJFOC-20110813565

PATIENT
  Sex: Female

DRUGS (1)
  1. LISTERINE COOLMINT [Suspect]
     Indication: INTENTIONAL DRUG MISUSE
     Route: 048

REACTIONS (2)
  - INTENTIONAL DRUG MISUSE [None]
  - INCORRECT ROUTE OF DRUG ADMINISTRATION [None]
